FAERS Safety Report 9608964 (Version 2)
Quarter: 2013Q4

REPORT INFORMATION
  Report Type: Spontaneous
  Country: DE (occurrence: DE)
  Receive Date: 20131009
  Receipt Date: 20131015
  Transmission Date: 20140711
  Serious: Yes (Other)
  Sender: FDA-Public Use
  Company Number: DE-PFIZER INC-2013289242

PATIENT
  Age: 74 Year
  Sex: Male

DRUGS (2)
  1. CISPLATINO TEVA [Suspect]
     Dosage: 50 MG, CYCLIC
     Route: 042
  2. ETOPOSIDE [Suspect]
     Indication: BRONCHIAL CARCINOMA
     Dosage: UNK
     Route: 042

REACTIONS (1)
  - Guillain-Barre syndrome [Unknown]
